FAERS Safety Report 10098399 (Version 2)
Quarter: 2014Q2

REPORT INFORMATION
  Report Type: Spontaneous
  Country: PL (occurrence: PL)
  Receive Date: 20140423
  Receipt Date: 20140423
  Transmission Date: 20141212
  Serious: Yes (Other)
  Sender: FDA-Public Use
  Company Number: PL-ROCHE-1314909

PATIENT
  Age: 31 Year
  Sex: Female
  Weight: 88 kg

DRUGS (6)
  1. ROACTEMRA [Suspect]
     Indication: RHEUMATOID ARTHRITIS
     Route: 042
     Dates: start: 20130718, end: 20131107
  2. EUTHYROX [Concomitant]
     Indication: HYPOTHYROIDISM
     Route: 048
  3. NOLPAZA [Concomitant]
     Indication: RHEUMATOID ARTHRITIS
     Route: 048
  4. BI-PROFENID [Concomitant]
     Indication: RHEUMATOID ARTHRITIS
     Route: 048
  5. ETANERCEPT [Concomitant]
     Route: 065
     Dates: start: 201302
  6. ADALIMUMAB [Concomitant]
     Route: 065
     Dates: start: 201305

REACTIONS (4)
  - Skin exfoliation [Recovering/Resolving]
  - Erythema [Recovering/Resolving]
  - Skin burning sensation [Not Recovered/Not Resolved]
  - Pruritus [Recovering/Resolving]
